FAERS Safety Report 4698736-0 (Version None)
Quarter: 2005Q2

REPORT INFORMATION
  Report Type: 
  Country: None (occurrence: None)
  Receive Date: 20050621
  Receipt Date: 20050608
  Transmission Date: 20051028
  Serious: Yes (Hospitalization)
  Sender: FDA-Public Use
  Company Number: JP_050606789

PATIENT
  Age: 69 Year
  Sex: Female

DRUGS (1)
  1. EVISTA [Suspect]
     Indication: OSTEOPOROSIS POSTMENOPAUSAL
     Dates: start: 20050329, end: 20050408

REACTIONS (4)
  - ATRIAL FIBRILLATION [None]
  - CARDIAC FAILURE [None]
  - HEAD DISCOMFORT [None]
  - PLEURAL EFFUSION [None]
